FAERS Safety Report 6915553-9 (Version None)
Quarter: 2010Q3

REPORT INFORMATION
  Report Type: 
  Country: None (occurrence: None)
  Receive Date: 20100804
  Receipt Date: 20100720
  Transmission Date: 20110219
  Serious: Yes (Life-Threatening)
  Sender: FDA-Public Use
  Company Number: 0212496

PATIENT
  Sex: Female

DRUGS (1)
  1. TACHOSIL [Suspect]
     Dosage: (1 DOSAGE FORMS,1 ONCE) TOPICAL
     Route: 061
     Dates: start: 20100714, end: 20100714

REACTIONS (2)
  - ANAPHYLACTIC SHOCK [None]
  - PROCEDURAL COMPLICATION [None]
